FAERS Safety Report 25813124 (Version 1)
Quarter: 2025Q3

REPORT INFORMATION
  Report Type: Spontaneous
  Country: EU (occurrence: EU)
  Receive Date: 20250917
  Receipt Date: 20250917
  Transmission Date: 20251021
  Serious: Yes (Other)
  Sender: UCB
  Company Number: EU-UCBSA-2025056758

PATIENT
  Sex: Male

DRUGS (2)
  1. BIMZELX [Suspect]
     Active Substance: BIMEKIZUMAB-BKZX
     Indication: Rheumatic disorder
  2. BIMZELX [Suspect]
     Active Substance: BIMEKIZUMAB-BKZX
     Indication: Off label use

REACTIONS (3)
  - Cholestasis [Unknown]
  - Cell death [Unknown]
  - Off label use [Unknown]
